FAERS Safety Report 8162651 (Version 6)
Quarter: 2012Q4

REPORT INFORMATION
  Report Type: 
  Country: US (occurrence: US)
  Receive Date: 20110929
  Receipt Date: 20121108
  Transmission Date: 20130627
  Serious: Yes (Other)
  Sender: FDA-Public Use
  Company Number: US-ASTRAZENECA-2011SE56731

PATIENT
  Age: 77 Year
  Sex: Female

DRUGS (2)
  1. ARIMIDEX [Suspect]
     Indication: BREAST CANCER RECURRENT
     Route: 048
     Dates: start: 201105
  2. ARIMIDEX [Suspect]
     Indication: BREAST CANCER RECURRENT
     Dosage: GENERIC ANASTRAZOLE
     Route: 065

REACTIONS (12)
  - Neoplasm malignant [Unknown]
  - Colon cancer [Unknown]
  - Bone cancer [Unknown]
  - Adverse drug reaction [Unknown]
  - Anaemia [Recovered/Resolved]
  - Paraesthesia [Unknown]
  - Dyspnoea [Unknown]
  - Cardiac disorder [Unknown]
  - Cardiac disorder [Unknown]
  - Adverse event [Unknown]
  - Hot flush [Recovering/Resolving]
  - Asthenia [Recovered/Resolved]
